FAERS Safety Report 20830256 (Version 2)
Quarter: 2022Q2

REPORT INFORMATION
  Report Type: Report from Study
  Country: JP (occurrence: JP)
  Receive Date: 20220514
  Receipt Date: 20220606
  Transmission Date: 20220721
  Serious: Yes (Hospitalization, Other)
  Sender: FDA-Public Use
  Company Number: JP-ONO-2022JP012133

PATIENT
  Age: 62 Year
  Sex: Male
  Weight: 57.4 kg

DRUGS (26)
  1. BMS-986310 [Suspect]
     Active Substance: BMS-986310
     Indication: Lung neoplasm malignant
     Dosage: 40 MG, EVERY DAY
     Route: 048
  2. DOCETAXEL [Suspect]
     Active Substance: DOCETAXEL
     Indication: Lung neoplasm malignant
     Dosage: 50 MG/M2, Q3W
     Route: 065
     Dates: start: 20220119
  3. RAMUCIRUMAB [Suspect]
     Active Substance: RAMUCIRUMAB
     Indication: Lung neoplasm malignant
     Dosage: 50 MG/M2, Q3W
     Route: 065
  4. LOXOPROFEN [Concomitant]
     Active Substance: LOXOPROFEN
     Indication: Cancer pain
     Dosage: 60 MG, Q12H
     Route: 048
     Dates: start: 20210226
  5. LOXOPROFEN [Concomitant]
     Active Substance: LOXOPROFEN
  6. REBAMIPIDE [Concomitant]
     Active Substance: REBAMIPIDE
     Indication: Gastritis prophylaxis
     Dosage: 100 MG, Q12H
     Route: 048
     Dates: start: 20210226
  7. PREGABALIN [Concomitant]
     Active Substance: PREGABALIN
     Indication: Cancer pain
     Dosage: 75 MG, EVERYDAY
     Route: 048
     Dates: start: 20210405
  8. PREGABALIN [Concomitant]
     Active Substance: PREGABALIN
  9. OXYCODONE HYDROCHLORIDE [Concomitant]
     Active Substance: OXYCODONE HYDROCHLORIDE
     Indication: Cancer pain
     Dosage: 60 MG, EVERYDAY
     Route: 048
     Dates: start: 20210817
  10. OXYCODONE HYDROCHLORIDE [Concomitant]
     Active Substance: OXYCODONE HYDROCHLORIDE
  11. XYZAL [Concomitant]
     Active Substance: LEVOCETIRIZINE DIHYDROCHLORIDE
     Indication: Skin disorder prophylaxis
     Dosage: 5 MG, EVERYDAY
     Route: 048
     Dates: start: 20210730
  12. XYZAL [Concomitant]
     Active Substance: LEVOCETIRIZINE DIHYDROCHLORIDE
  13. LANSOPRAZOLE [Concomitant]
     Active Substance: LANSOPRAZOLE
     Indication: Gastritis prophylaxis
     Dosage: 30 MG, EVERYDAY
     Route: 048
     Dates: start: 20220120
  14. POTASSIUM ASPARTATE [Concomitant]
     Active Substance: POTASSIUM ASPARTATE
     Indication: Hypokalaemia
     Dosage: 300 MG, Q12H
     Route: 048
     Dates: start: 20220222
  15. POTASSIUM ASPARTATE [Concomitant]
     Active Substance: POTASSIUM ASPARTATE
  16. BETAMETHASONE DIPROPIONATE [Concomitant]
     Active Substance: BETAMETHASONE DIPROPIONATE
     Indication: Blister
     Dosage: UNK UNK, Q12H
     Route: 061
     Dates: start: 20220222
  17. BETAMETHASONE DIPROPIONATE [Concomitant]
     Active Substance: BETAMETHASONE DIPROPIONATE
  18. HEPARINOID [Concomitant]
     Indication: Blister
     Dosage: UNK UNK, Q12H
     Route: 061
     Dates: start: 20220222
  19. HEPARINOID [Concomitant]
  20. FUSIDATE SODIUM [Concomitant]
     Active Substance: FUSIDATE SODIUM
     Indication: Blister
     Dosage: UNK UNK, EVERYDAY
     Route: 061
     Dates: start: 20220325
  21. FUSIDATE SODIUM [Concomitant]
     Active Substance: FUSIDATE SODIUM
  22. FUROSEMIDE [Concomitant]
     Active Substance: FUROSEMIDE
     Indication: Oedema peripheral
     Dosage: 40 MG, EVERYDAY
     Route: 048
     Dates: start: 20220325
  23. FUROSEMIDE [Concomitant]
     Active Substance: FUROSEMIDE
  24. SPIRONOLACTONE [Concomitant]
     Active Substance: SPIRONOLACTONE
     Indication: Oedema peripheral
     Dosage: 25 MG, Q8H
     Route: 048
     Dates: start: 20220325
  25. SPIRONOLACTONE [Concomitant]
     Active Substance: SPIRONOLACTONE
  26. OXYCODONE HYDROCHLORIDE [Concomitant]
     Active Substance: OXYCODONE HYDROCHLORIDE
     Indication: Cancer pain
     Dosage: 2.5 MG, PRN
     Route: 048
     Dates: start: 20210524

REACTIONS (2)
  - Acute kidney injury [Recovered/Resolved]
  - Pneumothorax [Recovered/Resolved]

NARRATIVE: CASE EVENT DATE: 20220506
